FAERS Safety Report 8283948-X (Version None)
Quarter: 2012Q2

REPORT INFORMATION
  Report Type: 
  Country: None (occurrence: None)
  Receive Date: 20120413
  Receipt Date: 20120406
  Transmission Date: 20120825
  Serious: Yes (Death, Other)
  Sender: FDA-Public Use
  Company Number: US-CELGENEUS-163-21880-10090952

PATIENT
  Sex: Male

DRUGS (29)
  1. ACETAMINOPHEN/HYDROCODONE [Concomitant]
     Dosage: 1 TABLET
     Route: 048
  2. ALUM + MAG HYDROXIDE-SIMETHICONE [Concomitant]
     Dosage: 15 MILLILITER
     Route: 048
  3. ISONIAZID [Concomitant]
     Dosage: 300 MILLIGRAM
     Route: 048
  4. DIATRIZOATE MEGLUMINE AND DIATRIZOATE NA SOLUTION [Concomitant]
     Dosage: 1 EA
     Route: 048
  5. DIPHENOXYLATE HCL + ATROPINE SULFATE [Concomitant]
     Dosage: 1 TABLET
     Route: 048
  6. PYRIDOXINE HCL [Concomitant]
     Dosage: 25 MILLIGRAM
     Route: 048
  7. GUAIFENESIN AND DEXTROMETHORPHAN HBR [Concomitant]
     Dosage: 10 MILLILITER
     Route: 048
  8. FUROSEMIDE [Concomitant]
     Dosage: 20 MILLIGRAM
     Route: 041
  9. LINEZOLID [Concomitant]
     Dosage: 600 MILLIGRAM
     Route: 041
  10. ONDANSETRON [Concomitant]
     Dosage: 8 MILLIGRAM
     Route: 002
  11. PROPOXYPHENE HCL CAP [Concomitant]
     Dosage: 65 MILLIGRAM
     Route: 048
  12. IPRATROPIUM BROMIDE [Concomitant]
     Dosage: 2.5 MILLILITER
     Route: 055
  13. PROMETHAZINE [Concomitant]
     Dosage: 12.5 MILLIGRAM
     Route: 041
  14. RIFAMPIN [Concomitant]
     Dosage: 600 MILLIGRAM
     Route: 048
  15. SODIUM CHLORIDE [Concomitant]
     Dosage: 10ML/1000ML
     Route: 041
  16. OFATUMUMAB [Suspect]
     Dosage: 300 MILLIGRAM
     Route: 041
     Dates: start: 20100401, end: 20100819
  17. ETHAMBUTOL HYDROCHLORIDE [Concomitant]
     Dosage: 1500 MILLIGRAM
     Route: 048
  18. MEROPENEM [Concomitant]
     Dosage: 2 GRAM
     Route: 041
  19. REVLIMID [Suspect]
     Indication: CHRONIC LYMPHOCYTIC LEUKAEMIA
     Dosage: 5 MILLIGRAM
     Route: 048
     Dates: start: 20100410
  20. PROCHLORPERAZINE MALEATE [Concomitant]
     Dosage: 10 MILLIGRAM
     Route: 048
  21. TEMAZEPAM [Concomitant]
     Dosage: 15 MILLIGRAM
     Route: 048
  22. VALACYCLOVIR HYDROCHLORIDE [Concomitant]
     Dosage: 500 MILLIGRAM
     Route: 048
  23. ACETAMINOPHEN [Concomitant]
     Dosage: 650 MILLIGRAM
     Route: 048
  24. CASPOFUNGIN ACETATE [Concomitant]
     Dosage: 50 MILLIGRAM
     Route: 041
  25. FILGRASTIM [Concomitant]
     Dosage: 480 MICROGRAM
     Route: 058
  26. LEVALBUTEROL HCL [Concomitant]
     Dosage: 0.63MG,1.25MG
     Route: 055
  27. DIPHENHYDRAMINE HCL [Concomitant]
     Dosage: 12.5 MILLIGRAM
     Route: 041
  28. LEVOFLOXACIN [Concomitant]
     Dosage: 500 MILLIGRAM
     Route: 041
  29. SENNOSIDES-DOCUSATE SODIUM [Concomitant]
     Dosage: 2 TAB, 1 TAB
     Route: 048

REACTIONS (1)
  - LUNG ADENOCARCINOMA [None]
